APPROVED DRUG PRODUCT: MIRENA
Active Ingredient: LEVONORGESTREL
Strength: 52MG
Dosage Form/Route: SYSTEM;INTRAUTERINE
Application: N021225 | Product #001
Applicant: BAYER HEALTHCARE PHARMACEUTICALS INC
Approved: Dec 6, 2000 | RLD: Yes | RS: Yes | Type: RX

PATENTS:
Patent 11850182 | Expires: Sep 14, 2029
Patent 10561524 | Expires: Sep 16, 2029